FAERS Safety Report 17409526 (Version 3)
Quarter: 2020Q2

REPORT INFORMATION
  Report Type: Spontaneous
  Country: JP (occurrence: JP)
  Receive Date: 20200212
  Receipt Date: 20200429
  Transmission Date: 20200713
  Serious: Yes (Other)
  Sender: FDA-Public Use
  Company Number: JP-009507513-2002JPN001021J

PATIENT
  Age: 71 Year
  Sex: Male
  Weight: 64 kg

DRUGS (22)
  1. LYRICA [Concomitant]
     Active Substance: PREGABALIN
     Dosage: 75 MILLIGRAM, BID (MORNING,EVENING) AFTER MEAL
     Route: 048
  2. ANTEBATE [Concomitant]
     Active Substance: BETAMETHASONE DIPROPIONATE
     Indication: RASH
     Dosage: UNK, PRN
  3. HACHIAZULE [Concomitant]
     Dosage: UNK, QID 1 PACKET AT A TIME, AROUND SEVERAL HOURS
     Route: 050
  4. ALLOPURINOL. [Concomitant]
     Active Substance: ALLOPURINOL
     Dosage: 100 MILLIGRAM, QD AFTER BREAKFAST
     Route: 048
  5. MAGMITT [Concomitant]
     Active Substance: MAGNESIUM OXIDE
     Dosage: 660 MILLIGRAM, TID (MORNING, NOON, EVENING) AFTER MEAL
     Route: 048
  6. MUCOSTA [Concomitant]
     Active Substance: REBAMIPIDE
     Dosage: 100 MILLIGRAM, TID (MORNING, NOON, EVENING) AFTER MEAL
     Route: 048
  7. NIFLAN [Concomitant]
     Active Substance: PRANOPROFEN
     Dosage: UNK, QID RIGHT EYE
     Route: 047
  8. TEARBALANCE [Concomitant]
     Active Substance: HYALURONATE SODIUM
     Dosage: UNK, QID
     Route: 047
  9. CALONAL [Concomitant]
     Active Substance: ACETAMINOPHEN
     Dosage: 500 MILLIGRAM, QID (MORNING, NOON, EVENING) AFTER MEAL, BEFORE SLEEP
     Route: 048
  10. LOXONIN [Concomitant]
     Active Substance: LOXOPROFEN SODIUM
     Dosage: 60 MILLIGRAM, TID (MORNING, NOON, EVENING) AFTER MEAL
     Route: 048
  11. ORTEXER [Concomitant]
     Indication: STOMATITIS
     Dosage: UNK, PRN
  12. SANCOBA [Concomitant]
     Active Substance: CYANOCOBALAMIN
     Dosage: UNK, QID
     Route: 047
  13. WARFARIN [Concomitant]
     Active Substance: WARFARIN
     Dosage: 3 MILLIGRAM, QD AFTER BREAKFAST
     Route: 048
  14. LOPERAMIDE EMEC [Concomitant]
     Dosage: 1 MILLIGRAM, BID AFTER BREAKFAST,AFTER DINNER
     Route: 048
  15. RINDERON VG [Concomitant]
     Active Substance: BETAMETHASONE VALERATE\GENTAMICIN SULFATE
     Dosage: UNK, BID SCALP
  16. URALYT [Concomitant]
     Active Substance: POTASSIUM CITRATE\TRISODIUM CITRATE DIHYDRATE
     Dosage: 1 DOSAGE FORM, QD AFTER BREAKFAST
     Route: 048
  17. OLOPATADINE HYDROCHLORIDE OD [Concomitant]
     Dosage: 5 MILLIGRAM, BID AFTER BREAKFAST BEFORE SLEEP
     Route: 048
  18. HIRUDOID [Concomitant]
     Active Substance: GLYCOSAMINOGLYCANS
     Dosage: UNK, PRN DRY FEET
  19. DERMOVATE [Concomitant]
     Active Substance: CLOBETASOL
     Dosage: UNK, QD REDNESS
  20. ACUATIM [Concomitant]
     Active Substance: NADIFLOXACIN
     Dosage: UNK, BID FACE
  21. KEYTRUDA [Suspect]
     Active Substance: PEMBROLIZUMAB
     Indication: TRANSITIONAL CELL CARCINOMA
     Dosage: 200 MILLIGRAM, Q3W
     Route: 041
     Dates: start: 20191003, end: 20191205
  22. AMITIZA [Concomitant]
     Active Substance: LUBIPROSTONE
     Dosage: 24 MICROGRAM, BID AFTER BREAKFAST AFTER DINNER
     Route: 048

REACTIONS (1)
  - Myelodysplastic syndrome [Unknown]

NARRATIVE: CASE EVENT DATE: 20200116
